FAERS Safety Report 4898252-7 (Version None)
Quarter: 2006Q1

REPORT INFORMATION
  Report Type: 
  Country: None (occurrence: None)
  Receive Date: 20060127
  Receipt Date: 20060117
  Transmission Date: 20060701
  Serious: Yes (Other)
  Sender: FDA-Public Use
  Company Number: US200511000086

PATIENT
  Age: 18 Year
  Sex: Female

DRUGS (2)
  1. STRATTERA [Suspect]
     Indication: ATTENTION DEFICIT/HYPERACTIVITY DISORDER
     Dosage: 60 MG,
  2. CLONIDINE [Concomitant]

REACTIONS (2)
  - BLOOD MAGNESIUM INCREASED [None]
  - ELECTROCARDIOGRAM QT PROLONGED [None]
